FAERS Safety Report 10953893 (Version 1)
Quarter: 2015Q1

REPORT INFORMATION
  Report Type: Spontaneous
  Country: US (occurrence: None)
  Receive Date: 20150226
  Receipt Date: 20150226
  Transmission Date: 20150721
  Serious: Yes (Hospitalization)
  Sender: FDA-Public Use
  Company Number: TPA2009A00666

PATIENT
  Age: 76 Year
  Sex: Male

DRUGS (5)
  1. ACTOS [Suspect]
     Active Substance: PIOGLITAZONE HYDROCHLORIDE
     Indication: PRODUCT USED FOR UNKNOWN INDICATION
     Route: 048
  2. METFORMIN [Concomitant]
     Active Substance: METFORMIN HYDROCHLORIDE
  3. UNKNOWN ACE INHIBITOR (ACE INHIBITOR NOS) [Concomitant]
  4. UNKNOWN BETA-BLOCKER (BETA BLOCKING AGENTS) [Concomitant]
  5. UNKNOWN DIURETIC (DIURETICS) [Concomitant]

REACTIONS (1)
  - Hypoglycaemia [None]
